FAERS Safety Report 5049991-9 (Version None)
Quarter: 2006Q2

REPORT INFORMATION
  Report Type: 
  Country: None (occurrence: None)
  Receive Date: 20060601
  Receipt Date: 20060208
  Transmission Date: 20061013
  Serious: No
  Sender: FDA-Public Use
  Company Number: US200602002570

PATIENT
  Sex: Female

DRUGS (2)
  1. CYMBALTA [Suspect]
     Dosage: 60 MG
     Dates: start: 20050101
  2. ZYPREXA [Suspect]
     Dosage: 15 MG

REACTIONS (2)
  - DEPRESSION [None]
  - SUICIDAL IDEATION [None]
